FAERS Safety Report 24878126 (Version 1)
Quarter: 2025Q1

REPORT INFORMATION
  Report Type: Spontaneous
  Country: US (occurrence: None)
  Receive Date: 20250123
  Receipt Date: 20250123
  Transmission Date: 20250409
  Serious: Yes (Hospitalization)
  Sender: FDA-CTU
  Company Number: None

PATIENT
  Sex: Male
  Weight: 92.4 kg

DRUGS (2)
  1. METHOTREXATE [Suspect]
     Active Substance: METHOTREXATE
  2. PONATINIB [Suspect]
     Active Substance: PONATINIB

REACTIONS (3)
  - Blood creatinine increased [None]
  - Therapy cessation [None]
  - Pleural effusion [None]

NARRATIVE: CASE EVENT DATE: 20250111
